FAERS Safety Report 5845079-5 (Version None)
Quarter: 2008Q3

REPORT INFORMATION
  Report Type: 
  Country: None (occurrence: None)
  Receive Date: 20080813
  Receipt Date: 20080813
  Transmission Date: 20090109
  Serious: No
  Sender: FDA-Public Use
  Company Number: None

PATIENT
  Age: 34 Year
  Sex: Female
  Weight: 136.0791 kg

DRUGS (1)
  1. LEVAQUIN [Suspect]
     Indication: POST PROCEDURAL INFECTION
     Dates: start: 20061105, end: 20061107

REACTIONS (49)
  - ABASIA [None]
  - ABDOMINAL PAIN UPPER [None]
  - ABNORMAL BEHAVIOUR [None]
  - ACTIVITIES OF DAILY LIVING IMPAIRED [None]
  - AMNESIA [None]
  - ANGER [None]
  - ANXIETY [None]
  - ARTHRALGIA [None]
  - ASTHENIA [None]
  - BEDRIDDEN [None]
  - BLISTER [None]
  - CONFUSIONAL STATE [None]
  - CONSTIPATION [None]
  - DIARRHOEA [None]
  - DIARRHOEA HAEMORRHAGIC [None]
  - DIZZINESS [None]
  - FATIGUE [None]
  - GAIT DISTURBANCE [None]
  - HALLUCINATION [None]
  - HEADACHE [None]
  - HYPERTENSION [None]
  - HYPOAESTHESIA [None]
  - INSOMNIA [None]
  - JOINT SWELLING [None]
  - MALAISE [None]
  - MARITAL PROBLEM [None]
  - MIGRAINE [None]
  - MYALGIA [None]
  - NAUSEA [None]
  - NIGHTMARE [None]
  - NO THERAPEUTIC RESPONSE [None]
  - OEDEMA PERIPHERAL [None]
  - ORAL DISCOMFORT [None]
  - OROPHARYNGEAL PAIN [None]
  - PAIN [None]
  - PAIN IN EXTREMITY [None]
  - PALPITATIONS [None]
  - PARAESTHESIA [None]
  - PYREXIA [None]
  - RASH ERYTHEMATOUS [None]
  - RESTLESSNESS [None]
  - SKIN EXFOLIATION [None]
  - SLEEP DISORDER [None]
  - SYNCOPE [None]
  - THERMAL BURN [None]
  - THINKING ABNORMAL [None]
  - THROAT TIGHTNESS [None]
  - URINE OUTPUT DECREASED [None]
  - VOMITING [None]
